FAERS Safety Report 15542165 (Version 3)
Quarter: 2019Q1

REPORT INFORMATION
  Report Type: Spontaneous
  Country: US (occurrence: US)
  Receive Date: 20181023
  Receipt Date: 20190114
  Transmission Date: 20190417
  Serious: No
  Sender: FDA-Public Use
  Company Number: US-SA-2018SA291993

PATIENT
  Age: 78 Year
  Sex: Male

DRUGS (1)
  1. ZOLPIDEM TARTRATE EXTENDED RELEASE - WINTHROP [Suspect]
     Active Substance: ZOLPIDEM TARTRATE
     Indication: INSOMNIA
     Dosage: 12.5 MG, HS
     Route: 065
     Dates: start: 20181006

REACTIONS (1)
  - Therapeutic response decreased [Unknown]
